FAERS Safety Report 10726832 (Version 1)
Quarter: 2015Q1

REPORT INFORMATION
  Report Type: Not Available
  Country: ZA (occurrence: ZA)
  Receive Date: 20150121
  Receipt Date: 20150121
  Transmission Date: 20150721
  Serious: Yes (Death, Hospitalization, Other)
  Sender: FDA-Public Use
  Company Number: ZA-CELGENE-THAZA200400253

PATIENT
  Age: 13 Month

DRUGS (6)
  1. ISONIAZID. [Concomitant]
     Active Substance: ISONIAZID
     Indication: MENINGITIS TUBERCULOUS
     Dosage: 20 MILLIGRAM/KILOGRAM
     Route: 065
  2. PYRAZINAMIDE. [Concomitant]
     Active Substance: PYRAZINAMIDE
     Indication: MENINGITIS TUBERCULOUS
     Route: 065
  3. THALIDOMIDE [Suspect]
     Active Substance: THALIDOMIDE
     Indication: MENINGITIS TUBERCULOUS
     Dosage: 24 MILLIGRAM/KILOGRAM
     Route: 048
  4. RIFAMPICIN [Concomitant]
     Active Substance: RIFAMPIN
     Indication: MENINGITIS TUBERCULOUS
     Route: 065
  5. ETHIONAMIDE [Concomitant]
     Active Substance: ETHIONAMIDE
     Indication: MENINGITIS TUBERCULOUS
     Dosage: 20 MILLIGRAM/KILOGRAM
     Route: 065
  6. PREDNISONE. [Concomitant]
     Active Substance: PREDNISONE
     Indication: MENINGITIS TUBERCULOUS
     Dosage: 40 MILLIGRAM/KILOGRAM
     Route: 065

REACTIONS (1)
  - Cerebral infarction [Unknown]
